FAERS Safety Report 7942145-5 (Version None)
Quarter: 2011Q4

REPORT INFORMATION
  Report Type: 
  Country: None (occurrence: None)
  Receive Date: 20111128
  Receipt Date: 20111121
  Transmission Date: 20120403
  Serious: Yes (Life-Threatening, Hospitalization, Other)
  Sender: FDA-Public Use
  Company Number: AU-ASTRAZENECA-2011SE34426

PATIENT
  Age: 35 Year
  Sex: Female

DRUGS (3)
  1. BLACKMORES [Concomitant]
     Indication: VITAMIN SUPPLEMENTATION
     Route: 048
  2. SEROQUEL [Suspect]
     Indication: PSYCHOTIC DISORDER
     Dosage: INITIATED PRE-PREGNANCY
     Route: 048
  3. SEROQUEL [Suspect]
     Dosage: INITIATED PRE-PREGNANCY
     Route: 048

REACTIONS (6)
  - CAESAREAN SECTION [None]
  - PRE-ECLAMPSIA [None]
  - URINARY TRACT INFECTION [None]
  - MATERNAL EXPOSURE DURING PREGNANCY [None]
  - MENTAL DISORDER [None]
  - KIDNEY INFECTION [None]
